FAERS Safety Report 12199875 (Version 1)
Quarter: 2016Q1

REPORT INFORMATION
  Report Type: Spontaneous
  Country: US (occurrence: None)
  Receive Date: 20160321
  Receipt Date: 20160321
  Transmission Date: 20160526
  Serious: No
  Sender: FDA-Public Use
  Company Number: None

PATIENT
  Age: 77 Year
  Sex: Male

DRUGS (14)
  1. POTASSIUM [Concomitant]
     Active Substance: POTASSIUM
  2. CALCIUM D [Concomitant]
     Active Substance: CALCIUM\VITAMIN D
  3. BRIMONIDINE [Concomitant]
     Active Substance: BRIMONIDINE TARTRATE
  4. LATANOPROST. [Concomitant]
     Active Substance: LATANOPROST
  5. SPIRONO/HCTZ [Concomitant]
  6. XALKORI [Suspect]
     Active Substance: CRIZOTINIB
     Indication: LUNG NEOPLASM MALIGNANT
     Route: 048
     Dates: start: 20150808
  7. ATORVASTATIN [Concomitant]
     Active Substance: ATORVASTATIN
  8. BENICAR [Concomitant]
     Active Substance: OLMESARTAN MEDOXOMIL
  9. PREVACID [Concomitant]
     Active Substance: LANSOPRAZOLE
  10. TAMSULOSIN [Concomitant]
     Active Substance: TAMSULOSIN
  11. VITAMIN B12 [Concomitant]
     Active Substance: CYANOCOBALAMIN
  12. ASPIRIN. [Concomitant]
     Active Substance: ASPIRIN
  13. CARVEDILOL. [Concomitant]
     Active Substance: CARVEDILOL
  14. LEVOTHYROXIN [Concomitant]
     Active Substance: LEVOTHYROXINE

REACTIONS (1)
  - Fatigue [None]
